FAERS Safety Report 9999517 (Version 1)
Quarter: 2014Q1

REPORT INFORMATION
  Report Type: Spontaneous
  Country: US (occurrence: US)
  Receive Date: 20140312
  Receipt Date: 20140312
  Transmission Date: 20141002
  Serious: No
  Sender: FDA-Public Use
  Company Number: US-TEVA-456208USA

PATIENT
  Age: 1 Year
  Sex: Male

DRUGS (1)
  1. AMOXICILLIN [Suspect]
     Indication: EAR INFECTION
     Dosage: 400MG/5ML
     Route: 048

REACTIONS (7)
  - Sleep terror [Unknown]
  - Faeces discoloured [Unknown]
  - Gastrointestinal pain [Unknown]
  - Flatulence [Unknown]
  - Restlessness [Unknown]
  - Insomnia [Unknown]
  - Diarrhoea [Unknown]
